FAERS Safety Report 19238554 (Version 1)
Quarter: 2021Q2

REPORT INFORMATION
  Report Type: Spontaneous
  Country: DE (occurrence: DE)
  Receive Date: 20210510
  Receipt Date: 20210510
  Transmission Date: 20210717
  Serious: Yes (Other)
  Sender: FDA-Public Use
  Company Number: DE-ROCHE-2827263

PATIENT
  Sex: Male

DRUGS (2)
  1. LUCENTIS [Suspect]
     Active Substance: RANIBIZUMAB
     Route: 050
     Dates: start: 20210418
  2. LUCENTIS [Suspect]
     Active Substance: RANIBIZUMAB
     Indication: NEOVASCULAR AGE-RELATED MACULAR DEGENERATION
     Route: 050

REACTIONS (5)
  - Taste disorder [Recovered/Resolved]
  - Tremor [Recovered/Resolved]
  - Injection site bruising [Recovered/Resolved]
  - Visual impairment [Unknown]
  - Parosmia [Recovered/Resolved]

NARRATIVE: CASE EVENT DATE: 20210418
